FAERS Safety Report 6112641-4 (Version None)
Quarter: 2009Q1

REPORT INFORMATION
  Report Type: 
  Country: None (occurrence: None)
  Receive Date: 20090312
  Receipt Date: 20090302
  Transmission Date: 20090719
  Serious: Yes (Hospitalization)
  Sender: FDA-Public Use
  Company Number: HU-BAYER-200915051GPV

PATIENT
  Age: 49 Year
  Sex: Female

DRUGS (1)
  1. MIRENA [Suspect]
     Indication: UTERINE LEIOMYOMA
     Route: 015
     Dates: start: 20081015, end: 20081223

REACTIONS (7)
  - ABDOMINAL PAIN LOWER [None]
  - ENDOMETRIAL HYPERPLASIA [None]
  - METRORRHAGIA [None]
  - OVARIAN CYST [None]
  - PELVIC FLUID COLLECTION [None]
  - RASH [None]
  - UTERINE LEIOMYOMA [None]
